FAERS Safety Report 9349200 (Version 2)
Quarter: 2013Q4

REPORT INFORMATION
  Report Type: Spontaneous
  Country: US (occurrence: US)
  Receive Date: 20130614
  Receipt Date: 20131106
  Transmission Date: 20140711
  Serious: Yes (Hospitalization)
  Sender: FDA-Public Use
  Company Number: US-BAYER-2013-070617

PATIENT
  Age: 27 Year
  Sex: Female
  Weight: 63.49 kg

DRUGS (1)
  1. MIRENA [Suspect]
     Indication: CONTRACEPTION
     Dosage: 20 MCG/24HR, CONT
     Route: 015
     Dates: start: 200906, end: 20100602

REACTIONS (11)
  - Uterine perforation [None]
  - Abdominal pain lower [None]
  - Erythema [None]
  - Abdominal tenderness [None]
  - Injury [None]
  - Emotional distress [None]
  - Pain [None]
  - Depression [None]
  - Anxiety [None]
  - Psychological trauma [None]
  - Device failure [None]
